FAERS Safety Report 16385478 (Version 3)
Quarter: 2019Q3

REPORT INFORMATION
  Report Type: Spontaneous
  Country: FR (occurrence: FR)
  Receive Date: 20190603
  Receipt Date: 20190701
  Transmission Date: 20191004
  Serious: Yes (Death, Hospitalization, Other)
  Sender: FDA-Public Use
  Company Number: FR-GILEAD-2019-0410953

PATIENT
  Age: 51 Year
  Sex: Female
  Weight: 99.6 kg

DRUGS (8)
  1. ALPRAZOLAM. [Concomitant]
     Active Substance: ALPRAZOLAM
     Route: 048
  2. POLARAMINE [Concomitant]
     Active Substance: DEXCHLORPHENIRAMINE MALEATE
     Route: 048
  3. KLIPAL [CODEINE PHOSPHATE;PARACETAMOL] [Concomitant]
     Route: 048
  4. IBUPROFEN. [Concomitant]
     Active Substance: IBUPROFEN
     Route: 048
  5. INORIAL [Concomitant]
     Active Substance: BILASTINE
     Route: 048
  6. CITALOPRAM [Concomitant]
     Active Substance: CITALOPRAM HYDROBROMIDE
     Route: 048
  7. GENVOYA [Suspect]
     Active Substance: COBICISTAT\ELVITEGRAVIR\EMTRICITABINE\TENOFOVIR ALAFENAMIDE FUMARATE
     Indication: HIV INFECTION
     Dosage: 1 DOSAGE FORM, QD
     Route: 048
     Dates: start: 20190425, end: 20190528
  8. THERALENE [Concomitant]
     Active Substance: TRIMEPRAZINE
     Route: 048

REACTIONS (3)
  - Subarachnoid haemorrhage [Fatal]
  - Dysphagia [Fatal]
  - Coma [Fatal]

NARRATIVE: CASE EVENT DATE: 201905
